FAERS Safety Report 5315184-0 (Version None)
Quarter: 2007Q2

REPORT INFORMATION
  Report Type: 
  Country: None (occurrence: None)
  Receive Date: 20070427
  Receipt Date: 20070420
  Transmission Date: 20071010
  Serious: Yes (Death)
  Sender: FDA-Public Use
  Company Number: 430005E07ITA

PATIENT
  Age: 67 Year
  Sex: Male

DRUGS (4)
  1. NOVANTRONE [Suspect]
     Indication: ACUTE MYELOID LEUKAEMIA
     Dosage: 10 MG, INTRAVENOUS (NOT OTHERWISE SPECIFIED)
     Route: 042
     Dates: start: 20070318, end: 20070323
  2. CYTARABINE [Suspect]
     Indication: ACUTE MYELOID LEUKAEMIA
     Dosage: 150 MG, INTRAVENOUS (NOT OTHERWISE SPECIFIED)
     Route: 042
     Dates: start: 20070319, end: 20070323
  3. ETOPOSIDE [Suspect]
     Indication: ACUTE MYELOID LEUKAEMIA
     Dosage: 150 MG, INTRAVENOUS (NOT OTHERWISE SPECIFIED)
     Dates: start: 20070319, end: 20070321
  4. INSULIN /00030501/ [Concomitant]

REACTIONS (2)
  - HEPATIC FAILURE [None]
  - SEPSIS [None]
